FAERS Safety Report 5673786-6 (Version None)
Quarter: 2008Q1

REPORT INFORMATION
  Report Type: 
  Country: None (occurrence: None)
  Receive Date: 20080319
  Receipt Date: 20080307
  Transmission Date: 20080703
  Serious: Yes (Other)
  Sender: FDA-Public Use
  Company Number: FR-PFIZER INC-2008021956

PATIENT
  Sex: Female

DRUGS (8)
  1. LYRICA [Suspect]
     Indication: NEURALGIA
  2. NORVIR [Suspect]
  3. INVIRASE [Suspect]
  4. FOSAMPRENAVIR [Suspect]
  5. CARDENSIEL [Concomitant]
  6. COVERSYL [Concomitant]
  7. KARDEGIC [Concomitant]
  8. VASTEN [Concomitant]

REACTIONS (4)
  - MENORRHAGIA [None]
  - PURPURA [None]
  - THERAPEUTIC PRODUCT INEFFECTIVE [None]
  - THROMBOCYTOPENIA [None]
